FAERS Safety Report 5256790-1 (Version None)
Quarter: 2007Q1

REPORT INFORMATION
  Report Type: 
  Country: None (occurrence: None)
  Receive Date: 20070306
  Receipt Date: 20070228
  Transmission Date: 20070707
  Serious: No
  Sender: FDA-Public Use
  Company Number: 2006UW10980

PATIENT
  Sex: Female
  Weight: 66.8 kg

DRUGS (3)
  1. SEROQUEL [Suspect]
     Indication: MENTAL DISORDER
     Route: 048
     Dates: start: 20020101, end: 20030101
  2. ZYPREXA [Suspect]
     Dates: start: 20000101, end: 20050101
  3. RISPERDAL [Suspect]
     Dates: start: 20020101, end: 20030101

REACTIONS (1)
  - DIABETES MELLITUS [None]
